FAERS Safety Report 6155593-3 (Version None)
Quarter: 2009Q2

REPORT INFORMATION
  Report Type: 
  Country: None (occurrence: None)
  Receive Date: 20090410
  Receipt Date: 20090410
  Transmission Date: 20091009
  Serious: Yes (Life-Threatening)
  Sender: FDA-Public Use
  Company Number: None

PATIENT
  Sex: Male

DRUGS (4)
  1. FLUDARABINE PHOSPHATE [Suspect]
     Indication: ACUTE MYELOID LEUKAEMIA
     Dosage: 60 MG DAILY IV DRIP
     Route: 041
     Dates: start: 20080717, end: 20080721
  2. THIOTEPA [Suspect]
     Indication: ACUTE MYELOID LEUKAEMIA
     Dosage: 439 MG DAILY IV DRIP
     Route: 041
     Dates: start: 20080717, end: 20080718
  3. R-ATG [Concomitant]
  4. TOTAL BODY IRRADIATION [Concomitant]

REACTIONS (4)
  - CONTINUOUS HAEMODIAFILTRATION [None]
  - HYPOXIA [None]
  - POST PROCEDURAL COMPLICATION [None]
  - SEPSIS [None]
